FAERS Safety Report 8371030-2 (Version None)
Quarter: 2012Q2

REPORT INFORMATION
  Report Type: 
  Country: None (occurrence: None)
  Receive Date: 20120518
  Receipt Date: 20120508
  Transmission Date: 20120825
  Serious: Yes (Other)
  Sender: FDA-Public Use
  Company Number: IL-BRISTOL-MYERS SQUIBB COMPANY-16600629

PATIENT
  Age: 27 Year
  Sex: Male

DRUGS (7)
  1. ETOPOSIDE [Suspect]
     Indication: HODGKIN'S DISEASE
     Dosage: 600 MG/M2 IN EB AND 300 MG/M2 IN SB
  2. ADRIAMYCIN PFS [Suspect]
     Indication: HODGKIN'S DISEASE
     Dosage: 35 MG/M2 IN EB AND 25 MG/M2 IN SB
  3. PROCARBAZINE HYDROCHLORIDE [Suspect]
     Indication: HODGKIN'S DISEASE
  4. PREDNISONE [Suspect]
     Indication: HODGKIN'S DISEASE
  5. ONCOVIN [Suspect]
     Indication: HODGKIN'S DISEASE
  6. BLEOMYCIN SULFATE [Suspect]
     Indication: HODGKIN'S DISEASE
     Dosage: ACCUMULATIVE DOSE 60MG/M2
  7. CYTOXAN [Suspect]
     Indication: HODGKIN'S DISEASE
     Dosage: 1250 MG/M2 IN EB AND 650 MG/M2 IN SB

REACTIONS (1)
  - RESPIRATORY DISORDER [None]
